FAERS Safety Report 6327535-9 (Version None)
Quarter: 2009Q3

REPORT INFORMATION
  Report Type: 
  Country: None (occurrence: None)
  Receive Date: 20090825
  Receipt Date: 20090820
  Transmission Date: 20100115
  Serious: Yes (Hospitalization, Other)
  Sender: FDA-Public Use
  Company Number: PHEH2008US06110

PATIENT
  Sex: Female

DRUGS (11)
  1. VIVELLE-DOT [Suspect]
     Indication: MENOPAUSAL SYMPTOMS
     Dosage: UNK
     Route: 062
     Dates: start: 19981101, end: 20011001
  2. AYGESTIN [Suspect]
     Indication: MENOPAUSAL SYMPTOMS
     Dosage: UNK
     Dates: start: 19981101, end: 20011001
  3. HYZAAR [Concomitant]
  4. TOPROL-XL [Concomitant]
  5. ATIVAN [Concomitant]
  6. CLARITIN [Concomitant]
     Dosage: 10MG
  7. XENICAL [Concomitant]
     Dosage: 120MG
  8. AMBIEN [Concomitant]
  9. MECLIZINE [Concomitant]
     Dosage: 25MG
  10. FUROSEMIDE [Concomitant]
     Dosage: 40MG
  11. TOPROL-XL [Concomitant]
     Dosage: 50MG

REACTIONS (30)
  - ALOPECIA [None]
  - ANXIETY [None]
  - ASTHENIA [None]
  - BREAST CANCER [None]
  - BREAST RECONSTRUCTION [None]
  - CELLULITIS [None]
  - CEREBROVASCULAR ACCIDENT [None]
  - CHEMOTHERAPY [None]
  - CHEST PAIN [None]
  - DECREASED ACTIVITY [None]
  - DYSPHEMIA [None]
  - DYSPNOEA [None]
  - HEMIPARESIS [None]
  - HEPATIC LESION [None]
  - INFECTION [None]
  - INJURY [None]
  - LYMPHOEDEMA [None]
  - MALAISE [None]
  - MARITAL PROBLEM [None]
  - MASTECTOMY [None]
  - MITRAL VALVE INCOMPETENCE [None]
  - MITRAL VALVE PROLAPSE [None]
  - MUSCULOSKELETAL PAIN [None]
  - NEUTROPENIA [None]
  - PALPITATIONS [None]
  - PARTNER STRESS [None]
  - PYREXIA [None]
  - ROTATOR CUFF SYNDROME [None]
  - SCAN LYMPH NODES [None]
  - STREPTOCOCCAL SEPSIS [None]
